FAERS Safety Report 24054105 (Version 1)
Quarter: 2024Q3

REPORT INFORMATION
  Report Type: Spontaneous
  Country: FR (occurrence: FR)
  Receive Date: 20240705
  Receipt Date: 20240705
  Transmission Date: 20241017
  Serious: Yes (Other)
  Sender: AUROBINDO
  Company Number: FR-AFSSAPS-PV2024000551

PATIENT
  Age: 30 Year
  Sex: Female
  Weight: 68 kg

DRUGS (3)
  1. ISOTRETINOIN [Suspect]
     Active Substance: ISOTRETINOIN
     Indication: Acne
     Dosage: UNK
     Route: 065
     Dates: start: 2019, end: 2019
  2. ISOTRETINOIN [Suspect]
     Active Substance: ISOTRETINOIN
     Dosage: UNK
     Route: 065
     Dates: start: 2020, end: 2020
  3. ESOMEPRAZOLE [Concomitant]
     Active Substance: ESOMEPRAZOLE
     Indication: Gastritis
     Dosage: UNK
     Route: 048
     Dates: start: 202303

REACTIONS (2)
  - Bone density decreased [Not Recovered/Not Resolved]
  - Tibia fracture [Recovering/Resolving]

NARRATIVE: CASE EVENT DATE: 20231101
